FAERS Safety Report 16815465 (Version 1)
Quarter: 2019Q3

REPORT INFORMATION
  Report Type: Spontaneous
  Country: FR (occurrence: FR)
  Receive Date: 20190917
  Receipt Date: 20190917
  Transmission Date: 20191005
  Serious: Yes (Hospitalization)
  Sender: FDA-Public Use
  Company Number: FR-TEVA-2019-FR-1106833

PATIENT
  Age: 36 Year

DRUGS (5)
  1. OXYCONTIN [Suspect]
     Active Substance: OXYCODONE HYDROCHLORIDE
     Dosage: 24 DF
     Route: 045
  2. ACUPAN [Suspect]
     Active Substance: NEFOPAM HYDROCHLORIDE
     Route: 048
  3. SUBUTEX [Suspect]
     Active Substance: BUPRENORPHINE HYDROCHLORIDE
     Route: 048
  4. CHLORHYDRATE DE TRAMADOL [Suspect]
     Active Substance: TRAMADOL HYDROCHLORIDE
     Dosage: 25 DF
     Route: 048
  5. CODEINE [Suspect]
     Active Substance: CODEINE
     Route: 048

REACTIONS (3)
  - Overdose [Not Recovered/Not Resolved]
  - Drug detoxification [Recovering/Resolving]
  - Drug withdrawal syndrome [Recovering/Resolving]
